FAERS Safety Report 5156720-7 (Version None)
Quarter: 2006Q4

REPORT INFORMATION
  Report Type: 
  Country: None (occurrence: None)
  Receive Date: 20061115
  Receipt Date: 20061030
  Transmission Date: 20070319
  Serious: Yes (Hospitalization)
  Sender: FDA-Public Use
  Company Number: DSA_28935_2006

PATIENT
  Age: 44 Year
  Sex: Male

DRUGS (1)
  1. TAVOR [Suspect]
     Dosage: 40 MG ONCE PO
     Route: 048
     Dates: start: 20061028, end: 20061028

REACTIONS (3)
  - ACCIDENTAL OVERDOSE [None]
  - FATIGUE [None]
  - INCORRECT DOSE ADMINISTERED [None]
